FAERS Safety Report 6801726-2 (Version None)
Quarter: 2010Q2

REPORT INFORMATION
  Report Type: 
  Country: None (occurrence: None)
  Receive Date: 20100629
  Receipt Date: 20100625
  Transmission Date: 20101027
  Serious: Yes (Death, Other)
  Sender: FDA-Public Use
  Company Number: US-ELI_LILLY_AND_COMPANY-US201006006857

PATIENT
  Sex: Male
  Weight: 99.773 kg

DRUGS (4)
  1. BYETTA [Suspect]
     Indication: TYPE 1 DIABETES MELLITUS
  2. ANTIHYPERTENSIVES [Concomitant]
  3. ORAL ANTIDIABETICS [Concomitant]
     Dates: end: 20010101
  4. INSULIN [Concomitant]
     Dates: start: 20010101

REACTIONS (3)
  - COLON CANCER METASTATIC [None]
  - MUSCULOSKELETAL DISORDER [None]
  - OFF LABEL USE [None]
